FAERS Safety Report 8570667-5 (Version None)
Quarter: 2012Q3

REPORT INFORMATION
  Report Type: 
  Country: None (occurrence: None)
  Receive Date: 20120805
  Receipt Date: 20120723
  Transmission Date: 20120928
  Serious: No
  Sender: FDA-Public Use
  Company Number: US-009507513-1207USA010591

PATIENT

DRUGS (5)
  1. VALSARTAN [Interacting]
  2. VIAGRA [Interacting]
  3. BYSTOLIC [Interacting]
  4. ZOCOR [Suspect]
     Route: 048
  5. CLOPIDOGREL BISULFATE [Interacting]

REACTIONS (2)
  - DRUG INTERACTION [None]
  - DRUG EFFECT DECREASED [None]
